FAERS Safety Report 9611222 (Version 2)
Quarter: 2014Q4

REPORT INFORMATION
  Report Type: Report from Study
  Country: DE (occurrence: DE)
  Receive Date: 20131009
  Receipt Date: 20141211
  Transmission Date: 20150529
  Serious: Yes (Death)
  Sender: FDA-Public Use
  Company Number: DE-ROCHE-1286928

PATIENT
  Sex: Male
  Weight: 67 kg

DRUGS (4)
  1. BEVACIZUMAB [Suspect]
     Active Substance: BEVACIZUMAB
     Indication: COLON CANCER
     Route: 042
     Dates: start: 20090609, end: 20090910
  2. IRINOTECAN [Suspect]
     Active Substance: IRINOTECAN
     Indication: COLON CANCER
     Route: 042
     Dates: start: 20090609, end: 20090910
  3. FOLINIC ACID [Suspect]
     Active Substance: LEUCOVORIN
     Indication: COLON CANCER
     Route: 042
     Dates: start: 20090609, end: 20090910
  4. 5-FU [Suspect]
     Active Substance: FLUOROURACIL
     Indication: COLON CANCER
     Route: 042
     Dates: start: 20090609, end: 20090910

REACTIONS (1)
  - Death [Fatal]
